FAERS Safety Report 4896393-1 (Version None)
Quarter: 2006Q1

REPORT INFORMATION
  Report Type: 
  Country: None (occurrence: None)
  Receive Date: 20060131
  Receipt Date: 20051109
  Transmission Date: 20060701
  Serious: Yes (Death)
  Sender: FDA-Public Use
  Company Number: DE-BRISTOL-MYERS SQUIBB COMPANY-13177126

PATIENT
  Age: 71 Year
  Sex: Female
  Weight: 73 kg

DRUGS (34)
  1. CETUXIMAB [Suspect]
     Indication: NON-SMALL CELL LUNG CANCER
     Dosage: 02 SEP 05, THE MOST RECENT INFUSIONS OF CETUXIMAB(8TH INFUSION)
     Route: 041
     Dates: start: 20050714
  2. CISPLATIN [Suspect]
     Indication: NON-SMALL CELL LUNG CANCER
     Dosage: 27 AUG 05, THE MOST RECENT INFUSION OF CISPLATIN (3RD INFUSION)
     Route: 042
     Dates: start: 20050714
  3. VINORELBINE [Suspect]
     Indication: NON-SMALL CELL LUNG CANCER
     Dosage: ON 02 SEP 05, THE MOST RECENT INFUSIONS (6TH INFUSION).
     Route: 042
     Dates: start: 20050714
  4. ISOSORBIDE [Concomitant]
  5. MOLSIDOMINE [Concomitant]
  6. ACETYLSALICYLIC ACID SRT [Concomitant]
  7. ONDANSETRON [Concomitant]
  8. DEXAMETHASONE TAB [Concomitant]
  9. CLEMASTINE [Concomitant]
  10. RANITIDINE [Concomitant]
  11. POTASSIUM CHLORIDE [Concomitant]
  12. IPRATROPIUM BROMIDE [Concomitant]
  13. FENOTEROL [Concomitant]
  14. OXAZEPAM [Concomitant]
  15. DOXYCYCLINE [Concomitant]
  16. MOVICOL [Concomitant]
  17. ADAPALENE [Concomitant]
  18. ESOMEPRAZOLE [Concomitant]
  19. IBROPROFEN [Concomitant]
  20. CIPROFLOXACIN [Concomitant]
  21. FLUCONAZOLE [Concomitant]
  22. PIPERACILLIN [Concomitant]
  23. TAZOBACTAM SODIUM [Concomitant]
  24. SODIUM CHLORIDE [Concomitant]
  25. STEROFUNDIN [Concomitant]
  26. OXYGEN [Concomitant]
  27. CALCIUM GLUCONATE [Concomitant]
  28. IMIPENEM [Concomitant]
  29. DIMENHYDRINATE [Concomitant]
  30. DOLASETRON [Concomitant]
  31. DIAZEPAM [Concomitant]
  32. LENOGRASTIM [Concomitant]
  33. OMEPRAZOLE [Concomitant]
  34. METOCLOPRAMIDE HCL [Concomitant]

REACTIONS (1)
  - ACUTE PULMONARY OEDEMA [None]
